FAERS Safety Report 10243475 (Version 1)
Quarter: 2014Q2

REPORT INFORMATION
  Report Type: Spontaneous
  Country: NL (occurrence: NL)
  Receive Date: 20140618
  Receipt Date: 20140618
  Transmission Date: 20141212
  Serious: Yes (Hospitalization)
  Sender: FDA-Public Use
  Company Number: NL-MYLANLABS-2014S1013777

PATIENT
  Age: 28 Year
  Sex: Female

DRUGS (2)
  1. NITROFURANTOIN [Suspect]
     Indication: CYSTITIS
     Route: 065
  2. HYDROXYPROGESTERONE [Concomitant]
     Dosage: WEEKLY, PROLUTON
     Route: 030

REACTIONS (2)
  - Haemolytic anaemia [Recovered/Resolved]
  - Proteinuria [Recovered/Resolved]
